FAERS Safety Report 10536158 (Version 2)
Quarter: 2014Q4

REPORT INFORMATION
  Report Type: Spontaneous
  Country: US (occurrence: US)
  Receive Date: 20141022
  Receipt Date: 20141022
  Transmission Date: 20150529
  Serious: Yes (Hospitalization)
  Sender: FDA-Public Use
  Company Number: US-RECKITT BENCKISER PHARMACEUTICAL, INC-RB-67690-2014

PATIENT

DRUGS (9)
  1. SUBOXONE [Suspect]
     Active Substance: BUPRENORPHINE HYDROCHLORIDE\NALOXONE HYDROCHLORIDE
     Indication: DRUG DEPENDENCE
     Dosage: SUBOXONE FILM; PRESCRIBED TO 8 MG TWICE DAILY
     Route: 060
     Dates: start: 2013, end: 201305
  2. KLONOPIN [Concomitant]
     Active Substance: CLONAZEPAM
     Indication: AGORAPHOBIA
  3. SUBOXONE [Suspect]
     Active Substance: BUPRENORPHINE HYDROCHLORIDE\NALOXONE HYDROCHLORIDE
     Dosage: SUBOXONE FILM; TAKING LESS THAN PRECSRIBED, CUTTING; PRESCRIBED 8 MG TWICE DAILY
     Route: 060
     Dates: start: 201403
  4. SUBOXONE [Suspect]
     Active Substance: BUPRENORPHINE HYDROCHLORIDE\NALOXONE HYDROCHLORIDE
     Dosage: SUBOXONE FILM; PRESCRIBED 8 MG TWICE DAILY, CUTTING
     Route: 060
     Dates: start: 201306, end: 201403
  5. NICOTINE. [Concomitant]
     Active Substance: NICOTINE
     Indication: PRODUCT USED FOR UNKNOWN INDICATION
     Dosage: SMOKING HALF PACK OF CIGARETTES DAILY
     Route: 055
  6. KLONOPIN [Concomitant]
     Active Substance: CLONAZEPAM
     Indication: POST-TRAUMATIC STRESS DISORDER
     Dosage: DOSING DETAILS UNKNOWN; STARTED 18 YEARS AGO
     Route: 048
  7. TRAZODONE [Concomitant]
     Active Substance: TRAZODONE HYDROCHLORIDE
     Indication: INSOMNIA
     Dosage: DOSING DETAILS UNKNWON; STARTED 18 YEARS AGO
     Route: 048
  8. ZUBSOLV [Suspect]
     Active Substance: BUPRENORPHINE HYDROCHLORIDE\NALOXONE HYDROCHLORIDE
     Indication: DRUG DEPENDENCE
     Dosage: PRESCRIBED TO 5.7 TWICE DAILY, CUTTING AND TAKING IT THROUGH OUT THE DAY
     Route: 060
     Dates: start: 201403
  9. LEXAPRO [Concomitant]
     Active Substance: ESCITALOPRAM OXALATE
     Indication: DEPRESSION
     Dosage: DOSING DETAILS UNKNOWN; STARTED 18 YERAS AGO
     Route: 048

REACTIONS (6)
  - Therapeutic response decreased [Not Recovered/Not Resolved]
  - Drug dependence [Recovered/Resolved]
  - Wrong technique in drug usage process [Not Recovered/Not Resolved]
  - Feeling abnormal [Not Recovered/Not Resolved]
  - Intentional underdose [Not Recovered/Not Resolved]
  - Euphoric mood [Not Recovered/Not Resolved]

NARRATIVE: CASE EVENT DATE: 2013
